FAERS Safety Report 4640723-2 (Version None)
Quarter: 2005Q2

REPORT INFORMATION
  Report Type: 
  Country: None (occurrence: None)
  Receive Date: 20050419
  Receipt Date: 20050310
  Transmission Date: 20051028
  Serious: Yes (Death)
  Sender: FDA-Public Use
  Company Number: 805#1#2005-00010

PATIENT
  Age: 69 Year
  Sex: Male

DRUGS (9)
  1. ALPROSTADIL [Suspect]
     Indication: HEPATIC FAILURE
     Dosage: SEE IMAGE
     Route: 041
     Dates: start: 20000127, end: 20000320
  2. ALPROSTADIL [Suspect]
     Indication: HEPATIC FAILURE
     Dosage: SEE IMAGE
     Route: 041
     Dates: start: 20000321, end: 20000327
  3. AMINO-ACID-PREPARATION (AMINO ACIDS NOS) [Concomitant]
  4. OMEPRAZOLE [Concomitant]
  5. CETRAXATE HYDROCHLORID (CETRAXATE HYDROCHLORIDE) [Concomitant]
  6. VOLTAREN SUPPO (DICLOFENAC SODIUM) [Concomitant]
  7. CYTOTEC [Concomitant]
  8. LASIX [Concomitant]
  9. ALDACTONE [Concomitant]

REACTIONS (3)
  - HEPATIC ARTERY EMBOLISM [None]
  - LIVER CARCINOMA RUPTURED [None]
  - SHOCK HAEMORRHAGIC [None]
